FAERS Safety Report 11292759 (Version 2)
Quarter: 2015Q3

REPORT INFORMATION
  Report Type: Report from Study
  Country: PL (occurrence: PL)
  Receive Date: 20150722
  Receipt Date: 20150914
  Transmission Date: 20151125
  Serious: Yes (Hospitalization)
  Sender: FDA-Public Use
  Company Number: PL-GILEAD-2015-0163758

PATIENT
  Age: 71 Year
  Sex: Female
  Weight: 43 kg

DRUGS (4)
  1. BENDAMUSTINE [Suspect]
     Active Substance: BENDAMUSTINE
     Dosage: 92 MG, CYCLICAL
     Route: 042
     Dates: end: 20150618
  2. RITUXIMAB [Suspect]
     Active Substance: RITUXIMAB
     Indication: NON-HODGKIN^S LYMPHOMA UNSPECIFIED HISTOLOGY INDOLENT
     Dosage: 585 MG, CYCLICAL
     Route: 042
     Dates: start: 20150226, end: 20150618
  3. BENDAMUSTINE [Suspect]
     Active Substance: BENDAMUSTINE
     Indication: NON-HODGKIN^S LYMPHOMA UNSPECIFIED HISTOLOGY INDOLENT
     Dosage: 140 MG, CYCLICAL
     Route: 042
     Dates: start: 20150226
  4. IDELALISIB [Suspect]
     Active Substance: IDELALISIB
     Indication: NON-HODGKIN^S LYMPHOMA UNSPECIFIED HISTOLOGY INDOLENT
     Dosage: 150 MG, BID
     Route: 048
     Dates: start: 20150226, end: 20150711

REACTIONS (5)
  - Decreased appetite [None]
  - Dehydration [Recovered/Resolved]
  - Diarrhoea [None]
  - Mucosal inflammation [Recovered/Resolved]
  - Dyspepsia [None]

NARRATIVE: CASE EVENT DATE: 20150714
